FAERS Safety Report 7605140-1 (Version None)
Quarter: 2011Q3

REPORT INFORMATION
  Report Type: 
  Country: None (occurrence: None)
  Receive Date: 20110713
  Receipt Date: 20110329
  Transmission Date: 20111222
  Serious: Yes (Other)
  Sender: FDA-Public Use
  Company Number: US-BAYER-201015507NA

PATIENT
  Age: 33 Year
  Sex: Female
  Weight: 34.409 kg

DRUGS (35)
  1. GADOLINIUM IN UNSPECIFIED DRUG [Suspect]
     Dates: start: 20020719, end: 20020719
  2. AMITRIPTYLINE HCL [Concomitant]
  3. LEXAPRO [Concomitant]
  4. GADOLINIUM IN UNSPECIFIED DRUG [Suspect]
     Route: 042
     Dates: start: 20000523, end: 20000523
  5. OMNISCAN [Suspect]
     Indication: ANGIOGRAM
     Dates: start: 20030707, end: 20030707
  6. CELLCEPT [Concomitant]
  7. ATENOLOL [Concomitant]
  8. HEPARIN [Concomitant]
     Route: 042
     Dates: start: 20020719
  9. GADOLINIUM IN UNSPECIFIED DRUG [Suspect]
     Dates: start: 20040504, end: 20040504
  10. NEURONTIN [Concomitant]
  11. SYNTHROID [Concomitant]
  12. GADOLINIUM IN UNSPECIFIED DRUG [Suspect]
     Dates: start: 20030411, end: 20030411
  13. GADOLINIUM IN UNSPECIFIED DRUG [Suspect]
     Dosage: 30 ML (DAILY DOSE), ,
     Dates: start: 20031113, end: 20031113
  14. TRAZODONE HCL [Concomitant]
  15. PRINIVIL [Concomitant]
  16. OMEPRAZOLE [Concomitant]
  17. NEPHROVITE [VIT C,VIT H,B5,B12,B9,B3,B6,B2,B1 HCL] [Concomitant]
  18. FELODIPINE [Concomitant]
  19. PROCARDIA [Concomitant]
  20. GADOLINIUM IN UNSPECIFIED DRUG [Suspect]
     Dates: start: 20000426, end: 20000426
  21. GADOLINIUM IN UNSPECIFIED DRUG [Suspect]
     Dates: start: 20030707, end: 20030707
  22. NORVASC [Concomitant]
  23. INDOCIN [Concomitant]
  24. FERRLECIT [Concomitant]
  25. OMNISCAN [Suspect]
     Indication: NUCLEAR MAGNETIC RESONANCE IMAGING
     Dates: start: 20040504, end: 20040504
  26. RENAGEL [Concomitant]
     Dosage: 800 MG, 6 TABLETS TID
     Route: 048
     Dates: start: 20020718
  27. LISINOPRIL [Concomitant]
  28. GADOLINIUM IN UNSPECIFIED DRUG [Suspect]
     Dates: start: 20000410, end: 20000410
  29. GADOLINIUM IN UNSPECIFIED DRUG [Suspect]
     Dates: start: 20010301, end: 20010301
  30. GADOLINIUM IN UNSPECIFIED DRUG [Suspect]
     Dates: start: 20070817, end: 20070817
  31. ASPIRIN [Concomitant]
  32. ARANESP [Concomitant]
  33. SENSIPAR [Concomitant]
  34. EPO [Concomitant]
     Route: 058
     Dates: start: 20020718
  35. REGLAN [Concomitant]

REACTIONS (19)
  - NEPHROGENIC SYSTEMIC FIBROSIS [None]
  - SKIN TIGHTNESS [None]
  - SKIN DISORDER [None]
  - OEDEMA PERIPHERAL [None]
  - GAIT DISTURBANCE [None]
  - JOINT RANGE OF MOTION DECREASED [None]
  - EXTREMITY CONTRACTURE [None]
  - ARTHRALGIA [None]
  - SKIN INDURATION [None]
  - MUSCULAR WEAKNESS [None]
  - SKIN SWELLING [None]
  - ASTHENIA [None]
  - PAIN [None]
  - SKIN HYPERTROPHY [None]
  - SKIN DISCOLOURATION [None]
  - MOBILITY DECREASED [None]
  - PRURITUS [None]
  - SKIN BURNING SENSATION [None]
  - SKIN MASS [None]
